FAERS Safety Report 11033618 (Version 5)
Quarter: 2016Q4

REPORT INFORMATION
  Report Type: Spontaneous
  Country: US (occurrence: US)
  Receive Date: 20150415
  Receipt Date: 20161010
  Transmission Date: 20170206
  Serious: Yes (Hospitalization)
  Sender: FDA-Public Use
  Company Number: US-JNJFOC-20150118839

PATIENT
  Age: 81 Year
  Sex: Male
  Weight: 69.4 kg

DRUGS (1)
  1. XARELTO [Suspect]
     Active Substance: RIVAROXABAN
     Indication: ANTICOAGULANT THERAPY
     Dosage: APPROXIMATELY 10-20 MG
     Route: 048
     Dates: start: 201405, end: 20140511

REACTIONS (3)
  - Renal failure [Unknown]
  - Gastrointestinal haemorrhage [Unknown]
  - Hepatic enzyme increased [Unknown]

NARRATIVE: CASE EVENT DATE: 201405
